FAERS Safety Report 16279394 (Version 2)
Quarter: 2019Q3

REPORT INFORMATION
  Report Type: Report from Study
  Country: None (occurrence: US)
  Receive Date: 20190507
  Receipt Date: 20190906
  Transmission Date: 20191004
  Serious: Yes (Other)
  Sender: FDA-Public Use
  Company Number: US-ABBVIE-19K-163-2764385-00

PATIENT
  Sex: Female
  Weight: 45.4 kg

DRUGS (4)
  1. HUMIRA [Suspect]
     Active Substance: ADALIMUMAB
     Indication: HIDRADENITIS
  2. XANAX [Suspect]
     Active Substance: ALPRAZOLAM
     Indication: PRODUCT USED FOR UNKNOWN INDICATION
     Route: 065
  3. HUMIRA [Suspect]
     Active Substance: ADALIMUMAB
     Indication: RHEUMATOID ARTHRITIS
     Route: 058
     Dates: start: 2015, end: 2016
  4. XANAX [Suspect]
     Active Substance: ALPRAZOLAM
     Route: 065

REACTIONS (4)
  - Anxiety [Unknown]
  - Physical product label issue [Unknown]
  - Panic attack [Unknown]
  - Drug dependence [Recovered/Resolved]
